FAERS Safety Report 5447550-7 (Version None)
Quarter: 2007Q3

REPORT INFORMATION
  Report Type: 
  Country: None (occurrence: None)
  Receive Date: 20070905
  Receipt Date: 20070828
  Transmission Date: 20080115
  Serious: Yes (Other)
  Sender: FDA-Public Use
  Company Number: GXKR2007DE06959

PATIENT
  Age: 58 Year
  Sex: Male

DRUGS (5)
  1. GLIBENHEXAL [Suspect]
     Dosage: 80 X 3.5 MG, ORAL
     Route: 048
  2. DICLOFENAC           (DICLOFENAC) [Concomitant]
  3. CAPTOPRIL [Concomitant]
  4. HYDROCHLOROTHIAZIDE [Concomitant]
  5. INSULIN           (INSULIN) [Concomitant]

REACTIONS (2)
  - INTENTIONAL OVERDOSE [None]
  - SUICIDE ATTEMPT [None]
